FAERS Safety Report 21363055 (Version 1)
Quarter: 2022Q3

REPORT INFORMATION
  Report Type: Spontaneous
  Country: US (occurrence: US)
  Receive Date: 20220922
  Receipt Date: 20220922
  Transmission Date: 20221027
  Serious: Yes (Other)
  Sender: FDA-Public Use
  Company Number: US-ADVANZ PHARMA-202209006225

PATIENT

DRUGS (28)
  1. HYDROXYCHLOROQUINE [Suspect]
     Active Substance: HYDROXYCHLOROQUINE
     Dosage: UNK,PLAQUENIL
  2. DIFLUCAN [Concomitant]
     Active Substance: FLUCONAZOLE
  3. NUVARING [Concomitant]
     Active Substance: ETHINYL ESTRADIOL\ETONOGESTREL
  4. SYNTHROID [Concomitant]
     Active Substance: LEVOTHYROXINE SODIUM
  5. LANTUS [Concomitant]
     Active Substance: INSULIN GLARGINE
  6. CITRUCEL [Concomitant]
     Active Substance: METHYLCELLULOSE (4000 MPA.S)
  7. NOVOLOG [Concomitant]
     Active Substance: INSULIN ASPART
  8. VITAMIN B12 [Concomitant]
     Active Substance: CYANOCOBALAMIN
  9. NYSTATIN [Concomitant]
     Active Substance: NYSTATIN
  10. FLUOROURACIL [Concomitant]
     Active Substance: FLUOROURACIL
  11. LATANOPROST [Concomitant]
     Active Substance: LATANOPROST
  12. OXYMORPHONE [Concomitant]
     Active Substance: OXYMORPHONE
  13. MAGNESIUM [Concomitant]
     Active Substance: MAGNESIUM
  14. Gumanex [Concomitant]
  15. LASIX [Concomitant]
     Active Substance: FUROSEMIDE
  16. Fetanyl [Concomitant]
  17. FLUZONE [Concomitant]
     Active Substance: INFLUENZA A VIRUS A/CALIFORNIA/7/2009 X-179A (H1N1) ANTIGEN (FORMALDEHYDE INACTIVATED)\INFLUENZA A V
  18. PLAQUENIL [Concomitant]
     Active Substance: HYDROXYCHLOROQUINE SULFATE
  19. FERAHEME [Concomitant]
     Active Substance: FERUMOXYTOL NON-STOICHIOMETRIC MAGNETITE
  20. AMOXICILLIN [Concomitant]
     Active Substance: AMOXICILLIN
  21. Albuerol [Concomitant]
  22. VITAMIN D3 [Concomitant]
     Active Substance: CHOLECALCIFEROL
  23. CYMBALTA [Concomitant]
     Active Substance: DULOXETINE HYDROCHLORIDE
  24. CELEBREX [Concomitant]
     Active Substance: CELECOXIB
  25. NEXIUM [Concomitant]
     Active Substance: ESOMEPRAZOLE MAGNESIUM
  26. PEPCID [Concomitant]
     Active Substance: FAMOTIDINE
  27. KEPPRA [Concomitant]
     Active Substance: LEVETIRACETAM
  28. SINGULAIR [Concomitant]
     Active Substance: MONTELUKAST SODIUM

REACTIONS (1)
  - Haemorrhage [Not Recovered/Not Resolved]
